FAERS Safety Report 4963301-4 (Version None)
Quarter: 2006Q2

REPORT INFORMATION
  Report Type: 
  Country: None (occurrence: None)
  Receive Date: 20060404
  Receipt Date: 20060404
  Transmission Date: 20061013
  Serious: No
  Sender: FDA-Public Use
  Company Number: None

PATIENT
  Sex: Male
  Weight: 79.3795 kg

DRUGS (12)
  1. CLOZAPINE [Suspect]
     Indication: SCHIZOPHRENIA
     Dosage: 200 MG  MORNING   PO;   300 MG  BEDTIME  PO
     Route: 048
     Dates: start: 20051209, end: 20060407
  2. CLOZAPINE [Suspect]
     Indication: SCHIZOPHRENIA
     Dosage: 200 MG  MORNING   PO;   300 MG  BEDTIME  PO
     Route: 048
     Dates: start: 20051209, end: 20060407
  3. ASPIRIN [Concomitant]
  4. BACLOFEN [Concomitant]
  5. LORAZEPAM [Concomitant]
  6. TARVIL [Concomitant]
  7. OMEGA-3 [Concomitant]
  8. FAMOTIDINE [Concomitant]
  9. METOPROLOL [Concomitant]
  10. ENALAPRIL MALEATE [Concomitant]
  11. PAROXETINE HCL [Concomitant]
  12. LITHIUM [Concomitant]

REACTIONS (1)
  - NEUTROPHIL COUNT DECREASED [None]
